FAERS Safety Report 5034764-3 (Version None)
Quarter: 2006Q2

REPORT INFORMATION
  Report Type: 
  Country: None (occurrence: None)
  Receive Date: 20060428
  Receipt Date: 20050914
  Transmission Date: 20061013
  Serious: Yes (Hospitalization)
  Sender: FDA-Public Use
  Company Number: 200610018BBE

PATIENT
  Sex: Female

DRUGS (1)
  1. GAMIMUNE N 10% [Suspect]
     Dates: start: 20030909

REACTIONS (1)
  - ANAPHYLACTIC REACTION [None]
